FAERS Safety Report 5759918-X (Version None)
Quarter: 2008Q2

REPORT INFORMATION
  Report Type: 
  Country: None (occurrence: None)
  Receive Date: 20080605
  Receipt Date: 20080603
  Transmission Date: 20081010
  Serious: Yes (Disabling)
  Sender: FDA-Public Use
  Company Number: CA-BRISTOL-MYERS SQUIBB COMPANY-14174072

PATIENT
  Age: 45 Year
  Sex: Female

DRUGS (6)
  1. ORENCIA [Suspect]
     Indication: RHEUMATOID ARTHRITIS
     Dosage: 18JUL07;01AUG;15AUG;12SEP;10OCT;07NOV;05DEC;02JAN08;30JAN;27FEB;26MAR;22APR08.THER.DURATION:Q4
     Route: 042
     Dates: start: 20070718
  2. METHOTREXATE [Concomitant]
  3. PREDNISONE TAB [Concomitant]
  4. PREVACID [Concomitant]
  5. CALCIUM [Concomitant]
  6. VITAMIN D [Concomitant]

REACTIONS (4)
  - CHEST X-RAY ABNORMAL [None]
  - DYSPHONIA [None]
  - DYSPNOEA [None]
  - WHEEZING [None]
